FAERS Safety Report 18139111 (Version 1)
Quarter: 2020Q3

REPORT INFORMATION
  Report Type: Spontaneous
  Country: JP (occurrence: JP)
  Receive Date: 20200812
  Receipt Date: 20200812
  Transmission Date: 20201103
  Serious: Yes (Hospitalization)
  Sender: FDA-Public Use
  Company Number: JP-ELI_LILLY_AND_COMPANY-JP202008001788

PATIENT

DRUGS (2)
  1. PRASUGREL HYDROCHLORIDE [Suspect]
     Active Substance: PRASUGREL HYDROCHLORIDE
     Indication: ARTERIAL THROMBOSIS
     Dosage: 3.75 MG, DAILY
     Route: 065
     Dates: end: 202007
  2. BAYASPIRIN [Concomitant]
     Active Substance: ASPIRIN
     Indication: ARTERIAL THROMBOSIS
     Dosage: UNK
     Route: 065
     Dates: end: 202007

REACTIONS (2)
  - Peripheral arterial occlusive disease [Unknown]
  - Cerebral infarction [Recovered/Resolved]

NARRATIVE: CASE EVENT DATE: 202007
